FAERS Safety Report 23045135 (Version 1)
Quarter: 2023Q4

REPORT INFORMATION
  Report Type: Spontaneous
  Country: US (occurrence: US)
  Receive Date: 20231009
  Receipt Date: 20231009
  Transmission Date: 20240109
  Serious: No
  Sender: FDA-Public Use
  Company Number: US-ABBVIE-5433860

PATIENT
  Age: 58 Year
  Sex: Female

DRUGS (4)
  1. LEVOTHYROXINE [Suspect]
     Active Substance: LEVOTHYROXINE
     Indication: Hypothyroidism
     Route: 048
  2. LEVOTHYROXINE [Suspect]
     Active Substance: LEVOTHYROXINE
     Indication: Hypothyroidism
     Dosage: FORM STRENGTH: 0.5 MICROGRAM
     Route: 048
     Dates: start: 202303, end: 20230829
  3. LEVOTHYROXINE [Suspect]
     Active Substance: LEVOTHYROXINE
     Indication: Hypothyroidism
     Dosage: 0.25 MICROGRAM
     Route: 048
     Dates: start: 202209, end: 202303
  4. SYNTHROID [Suspect]
     Active Substance: LEVOTHYROXINE SODIUM
     Indication: Hypothyroidism
     Dosage: FORM STRENGTH: 0.25 MICROGRAM
     Route: 048
     Dates: start: 20230923

REACTIONS (16)
  - Cough [Not Recovered/Not Resolved]
  - Adverse drug reaction [Unknown]
  - Speech disorder [Recovered/Resolved]
  - Temperature intolerance [Recovered/Resolved]
  - Dysphagia [Recovered/Resolved]
  - Fear [Not Recovered/Not Resolved]
  - Choking [Not Recovered/Not Resolved]
  - COVID-19 [Recovered/Resolved]
  - Stress [Recovered/Resolved]
  - Hypophagia [Recovered/Resolved]
  - Pharyngeal swelling [Not Recovered/Not Resolved]
  - Dehydration [Recovered/Resolved]
  - Alopecia [Not Recovered/Not Resolved]
  - Asthma [Not Recovered/Not Resolved]
  - Hyperhidrosis [Unknown]
  - Nutritional condition abnormal [Unknown]

NARRATIVE: CASE EVENT DATE: 20220901
